FAERS Safety Report 9228051 (Version 1)
Quarter: 2013Q2

REPORT INFORMATION
  Report Type: Spontaneous
  Country: US (occurrence: US)
  Receive Date: 20130412
  Receipt Date: 20130412
  Transmission Date: 20140414
  Serious: No
  Sender: FDA-Public Use
  Company Number: US-GLAXOSMITHKLINE-A1011117A

PATIENT
  Age: 50 Year
  Sex: Male

DRUGS (2)
  1. JALYN [Suspect]
     Indication: BENIGN PROSTATIC HYPERPLASIA
     Dosage: .5MG PER DAY
     Route: 048
     Dates: start: 201210
  2. NEXIUM [Concomitant]

REACTIONS (2)
  - Feeling abnormal [Recovered/Resolved]
  - Slow response to stimuli [Unknown]
